FAERS Safety Report 25928535 (Version 1)
Quarter: 2025Q4

REPORT INFORMATION
  Report Type: Spontaneous
  Country: CN (occurrence: CN)
  Receive Date: 20251016
  Receipt Date: 20251016
  Transmission Date: 20260117
  Serious: Yes (Hospitalization)
  Sender: BEIGENE
  Company Number: CN-BEIGENE-BGN-2025-017788

PATIENT
  Age: 71 Year
  Weight: 95 kg

DRUGS (6)
  1. TISLELIZUMAB [Suspect]
     Active Substance: TISLELIZUMAB
     Indication: Renal cancer
     Dosage: 200 MILLIGRAM, Q3WK
  2. TISLELIZUMAB [Suspect]
     Active Substance: TISLELIZUMAB
     Indication: Metastases to lung
  3. BEVACIZUMAB [Concomitant]
     Active Substance: BEVACIZUMAB
     Indication: Renal cancer
     Dosage: 200 MILLIGRAM
  4. BEVACIZUMAB [Concomitant]
     Active Substance: BEVACIZUMAB
     Indication: Lung neoplasm malignant
  5. SORAFENIB TOSYLATE [Concomitant]
     Active Substance: SORAFENIB TOSYLATE
     Indication: Renal cancer
     Dosage: 0.4 GRAM, BID
  6. SORAFENIB TOSYLATE [Concomitant]
     Active Substance: SORAFENIB TOSYLATE
     Indication: Metastases to lung
     Dosage: 0.4 GRAM, BID

REACTIONS (1)
  - Chronic kidney disease [Not Recovered/Not Resolved]
